FAERS Safety Report 5755270-4 (Version None)
Quarter: 2008Q2

REPORT INFORMATION
  Report Type: 
  Country: None (occurrence: None)
  Receive Date: 20080529
  Receipt Date: 20080529
  Transmission Date: 20081010
  Serious: Yes (Other)
  Sender: FDA-Public Use
  Company Number: None

PATIENT
  Age: 35 Year
  Sex: Female
  Weight: 57.1532 kg

DRUGS (1)
  1. SEROQUEL [Suspect]
     Indication: ANXIETY DISORDER
     Dosage: 300MG Q4HOURS PO
     Route: 048
     Dates: start: 20080514, end: 20080515

REACTIONS (6)
  - CONFUSIONAL STATE [None]
  - HYPERREFLEXIA [None]
  - MUSCLE CONTRACTIONS INVOLUNTARY [None]
  - NYSTAGMUS [None]
  - SYNCOPE [None]
  - TREMOR [None]
